FAERS Safety Report 7832934-X (Version None)
Quarter: 2011Q4

REPORT INFORMATION
  Report Type: 
  Country: None (occurrence: None)
  Receive Date: 20111019
  Receipt Date: 20111004
  Transmission Date: 20120403
  Serious: Yes (Death, Other)
  Sender: FDA-Public Use
  Company Number: LMI-2011-00765

PATIENT
  Sex: Male

DRUGS (1)
  1. DEFINITY (PERFLUTREN) [Suspect]
     Indication: ECHOCARDIOGRAM

REACTIONS (3)
  - ATRIAL FIBRILLATION [None]
  - LOSS OF CONSCIOUSNESS [None]
  - PULSELESS ELECTRICAL ACTIVITY [None]
